FAERS Safety Report 7932788-7 (Version None)
Quarter: 2011Q4

REPORT INFORMATION
  Report Type: 
  Country: None (occurrence: None)
  Receive Date: 20111122
  Receipt Date: 20111111
  Transmission Date: 20120403
  Serious: Yes (Hospitalization)
  Sender: FDA-Public Use
  Company Number: BR-BRISTOL-MYERS SQUIBB COMPANY-16240608

PATIENT
  Age: 77 Year
  Sex: Female

DRUGS (6)
  1. METFORMIN HCL [Suspect]
     Indication: DIABETES MELLITUS
     Route: 048
  2. SIMVASTATIN [Concomitant]
     Indication: BLOOD CHOLESTEROL
  3. ATENOLOL [Concomitant]
     Indication: HYPERTENSION
  4. CAPTOPRIL [Concomitant]
     Indication: HYPERTENSION
     Dates: start: 20110801
  5. RANITIDINE [Concomitant]
  6. DIOVAN [Concomitant]
     Indication: HYPERTENSION
     Dosage: 1 DF: 160/12MG,5/5 MG

REACTIONS (4)
  - HYPERTENSION [None]
  - CEREBROVASCULAR ACCIDENT [None]
  - CAROTID ARTERY OCCLUSION [None]
  - FATIGUE [None]
